FAERS Safety Report 6675067-0 (Version None)
Quarter: 2010Q2

REPORT INFORMATION
  Report Type: 
  Country: None (occurrence: None)
  Receive Date: 20100409
  Receipt Date: 20100405
  Transmission Date: 20101027
  Serious: Yes (Other)
  Sender: FDA-Public Use
  Company Number: AT-TEVA-230108USA

PATIENT
  Age: 48 Year
  Sex: Female

DRUGS (1)
  1. PIMOZIDE TABLETS [Suspect]
     Indication: DRUG USE FOR UNKNOWN INDICATION
     Dosage: 2X4MG
     Route: 048
     Dates: start: 20000101

REACTIONS (2)
  - GYNAECOMASTIA [None]
  - OSTEOPOROSIS [None]
